FAERS Safety Report 5036751-8 (Version None)
Quarter: 2006Q2

REPORT INFORMATION
  Report Type: 
  Country: None (occurrence: None)
  Receive Date: 20060616
  Receipt Date: 20060314
  Transmission Date: 20061013
  Serious: No
  Sender: FDA-Public Use
  Company Number: 2006RL000089

PATIENT
  Sex: Male

DRUGS (1)
  1. OMACOR [Suspect]
     Dosage: 1000 MG; QID;

REACTIONS (1)
  - GOITRE [None]
